FAERS Safety Report 14406251 (Version 1)
Quarter: 2018Q1

REPORT INFORMATION
  Report Type: Report from Study
  Country: NL (occurrence: NL)
  Receive Date: 20180118
  Receipt Date: 20180118
  Transmission Date: 20180509
  Serious: Yes (Hospitalization)
  Sender: FDA-Public Use
  Company Number: NL-IPSEN BIOPHARMACEUTICALS, INC.-2018-00474

PATIENT

DRUGS (6)
  1. OXALIPLATIN. [Suspect]
     Active Substance: OXALIPLATIN
     Indication: COLORECTAL CANCER
     Route: 042
     Dates: start: 20161215
  2. LEUCOVORIN. [Suspect]
     Active Substance: LEUCOVORIN
     Indication: COLORECTAL CANCER
     Route: 042
     Dates: start: 20161215
  3. AVASTIN [Suspect]
     Active Substance: BEVACIZUMAB
     Indication: COLORECTAL CANCER
     Route: 042
     Dates: start: 20161215
  4. PEGYLATED LIPOSOMAL IRINOTECAN [Suspect]
     Active Substance: IRINOTECAN HYDROCHLORIDE
     Indication: COLORECTAL CANCER
     Route: 042
     Dates: start: 20161215
  5. 5-FLUOROURACIL [Suspect]
     Active Substance: FLUOROURACIL
     Indication: COLORECTAL CANCER
     Route: 042
     Dates: start: 20161215
  6. PEGYLATED LIPOSOMAL IRINOTECAN [Suspect]
     Active Substance: IRINOTECAN HYDROCHLORIDE
     Indication: OFF LABEL USE

REACTIONS (3)
  - Pelvic fluid collection [Recovered/Resolved]
  - Off label use [Unknown]
  - Fistula [Recovered/Resolved]

NARRATIVE: CASE EVENT DATE: 20170206
